FAERS Safety Report 12034559 (Version 3)
Quarter: 2018Q2

REPORT INFORMATION
  Report Type: Spontaneous
  Country: US (occurrence: US)
  Receive Date: 20160207
  Receipt Date: 20180502
  Transmission Date: 20180711
  Serious: Yes (Hospitalization, Other)
  Sender: FDA-Public Use
  Company Number: US-ENDO PHARMACEUTICALS INC.-2016-000819

PATIENT
  Age: 64 Year
  Sex: Male
  Weight: 113.5 kg

DRUGS (8)
  1. TESTIM [Suspect]
     Active Substance: TESTOSTERONE
     Indication: ANDROGEN REPLACEMENT THERAPY
     Dosage: UNK UNKNOWN, UNKNOWN
     Route: 062
     Dates: start: 2009, end: 2014
  2. MOTRIN [Concomitant]
     Active Substance: IBUPROFEN
     Indication: PAIN
     Dosage: 800 MG, EVERY 8 HOURS, PRN
     Route: 048
  3. VERAPAMIL HCL [Concomitant]
     Active Substance: VERAPAMIL HYDROCHLORIDE
     Indication: HYPERTENSION
     Dosage: 240 MG, DAILY
     Route: 065
     Dates: start: 1997
  4. ANDROGEL [Suspect]
     Active Substance: TESTOSTERONE
     Indication: ANDROGEN REPLACEMENT THERAPY
     Dosage: UNK UNKNOWN, UNKNOWN
     Route: 065
     Dates: start: 20090430, end: 20140114
  5. ATORVASTATIN CALCIUM. [Concomitant]
     Active Substance: ATORVASTATIN CALCIUM
     Indication: BLOOD CHOLESTEROL INCREASED
     Dosage: 40 MG, DAILY
     Route: 048
     Dates: start: 1999
  6. BIO-T-GEL [Suspect]
     Active Substance: TESTOSTERONE
     Indication: ANDROGEN REPLACEMENT THERAPY
     Dosage: UNK UNKNOWN, UNKNOWN
     Route: 065
     Dates: start: 2009, end: 2014
  7. HYDROCODONE BITARTRATE AND ACETAMINOPHEN [Concomitant]
     Active Substance: ACETAMINOPHEN\HYDROCODONE BITARTRATE
     Indication: PAIN
     Dosage: 7.5/325 MG, 1 DF, BID
     Route: 048
     Dates: start: 1995
  8. XANAX [Concomitant]
     Active Substance: ALPRAZOLAM
     Indication: ANXIETY
     Dosage: UNK UNKNOWN, UNKNOWN
     Route: 065
     Dates: start: 1998

REACTIONS (1)
  - Cerebrovascular accident [Unknown]

NARRATIVE: CASE EVENT DATE: 20140325
